FAERS Safety Report 18882894 (Version 2)
Quarter: 2021Q2

REPORT INFORMATION
  Report Type: Spontaneous
  Country: US (occurrence: US)
  Receive Date: 20210212
  Receipt Date: 20210405
  Transmission Date: 20210717
  Serious: Yes (Hospitalization, Other)
  Sender: FDA-Public Use
  Company Number: US-KYOWAKIRIN-2021BKK001745

PATIENT

DRUGS (3)
  1. POTELIGEO [Suspect]
     Active Substance: MOGAMULIZUMAB-KPKC
     Dosage: EVERY WEEK
     Route: 042
     Dates: end: 2020
  2. POTELIGEO [Suspect]
     Active Substance: MOGAMULIZUMAB-KPKC
     Indication: CUTANEOUS T-CELL LYMPHOMA
     Dosage: 1 MG/KG, EVERY OTHER WEEK
     Route: 042
     Dates: start: 202006, end: 202103
  3. TRIAMCINOLONE [Suspect]
     Active Substance: TRIAMCINOLONE
     Indication: CUTANEOUS T-CELL LYMPHOMA
     Dosage: 2 WEEKS ON AND 2 WEEKS OFF
     Route: 061

REACTIONS (5)
  - Glioblastoma [Unknown]
  - Fatigue [Unknown]
  - Therapy partial responder [Not Recovered/Not Resolved]
  - Eczema [Recovered/Resolved]
  - Hypersensitivity [Unknown]

NARRATIVE: CASE EVENT DATE: 2021
